FAERS Safety Report 14931431 (Version 9)
Quarter: 2022Q3

REPORT INFORMATION
  Report Type: Spontaneous
  Country: IT (occurrence: IT)
  Receive Date: 20180524
  Receipt Date: 20220824
  Transmission Date: 20221027
  Serious: Yes (Hospitalization, Other)
  Sender: FDA-Public Use
  Company Number: IT-EMA-DD-20180504-SGALIPALLIP-100233

PATIENT
  Age: 58 Year
  Sex: Male
  Weight: 109 kg

DRUGS (4)
  1. SPIRONOLACTONE [Interacting]
     Active Substance: SPIRONOLACTONE
     Indication: Product used for unknown indication
     Dosage: UNK ()
     Route: 065
  2. SIMVASTATIN [Interacting]
     Active Substance: SIMVASTATIN
     Indication: Product used for unknown indication
     Dosage: REGIMEN 1 ()
     Route: 065
  3. ASPIRIN [Interacting]
     Active Substance: ASPIRIN
     Indication: Product used for unknown indication
     Dosage: ()
     Route: 065
  4. GLYBURIDE [Interacting]
     Active Substance: GLYBURIDE
     Indication: Product used for unknown indication
     Dosage: UNK ()
     Route: 065

REACTIONS (21)
  - Pulmonary congestion [Unknown]
  - Hepatic pain [Unknown]
  - Quadriparesis [Unknown]
  - Acute kidney injury [Unknown]
  - Areflexia [Unknown]
  - Pain in extremity [Unknown]
  - Platelet count normal [Unknown]
  - Back pain [Unknown]
  - Rhabdomyolysis [Unknown]
  - Myalgia [Unknown]
  - Dehydration [Unknown]
  - Drug interaction [Unknown]
  - Gait disturbance [Unknown]
  - Oliguria [Unknown]
  - Oedema peripheral [Unknown]
  - Localised oedema [Unknown]
  - Hepatomegaly [Unknown]
  - Scrotal oedema [Unknown]
  - Dysuria [Unknown]
  - Haemodialysis [Unknown]
  - Generalised oedema [Unknown]
